FAERS Safety Report 12775949 (Version 1)
Quarter: 2016Q3

REPORT INFORMATION
  Report Type: Spontaneous
  Country: US (occurrence: US)
  Receive Date: 20160923
  Receipt Date: 20160923
  Transmission Date: 20161109
  Serious: Yes (Other)
  Sender: FDA-Public Use
  Company Number: US-OTSUKA-2016_022505

PATIENT
  Age: 47 Year
  Sex: Female

DRUGS (4)
  1. LITHIUM. [Suspect]
     Active Substance: LITHIUM
     Dosage: UNK
     Route: 065
  2. REXULTI [Suspect]
     Active Substance: BREXPIPRAZOLE
     Dosage: UNK
     Route: 065
     Dates: start: 201609
  3. LITHIUM. [Suspect]
     Active Substance: LITHIUM
     Indication: BIPOLAR I DISORDER
     Dosage: UNK
     Route: 065
  4. REXULTI [Suspect]
     Active Substance: BREXPIPRAZOLE
     Indication: BIPOLAR I DISORDER
     Dosage: 1 MG, QD
     Route: 065
     Dates: start: 2016, end: 2016

REACTIONS (15)
  - Hot flush [Not Recovered/Not Resolved]
  - Erythema [Recovering/Resolving]
  - Pruritus [Not Recovered/Not Resolved]
  - Irritability [Not Recovered/Not Resolved]
  - Lip swelling [Not Recovered/Not Resolved]
  - Formication [Not Recovered/Not Resolved]
  - Heart rate decreased [Recovering/Resolving]
  - Sleep disorder [Unknown]
  - Eye swelling [Not Recovered/Not Resolved]
  - Thyroid hormones decreased [Unknown]
  - Off label use [Unknown]
  - Muscular weakness [Unknown]
  - Weight increased [Not Recovered/Not Resolved]
  - Abdominal discomfort [Not Recovered/Not Resolved]
  - Staphylococcal infection [Recovering/Resolving]

NARRATIVE: CASE EVENT DATE: 2016
